FAERS Safety Report 19374212 (Version 1)
Quarter: 2021Q2

REPORT INFORMATION
  Report Type: Report from Study
  Country: CN (occurrence: CN)
  Receive Date: 20210603
  Receipt Date: 20210603
  Transmission Date: 20210717
  Serious: Yes (Other)
  Sender: FDA-Public Use
  Company Number: CN-JIANGSU HENGRUI MEDICINE CO., LTD.-2112336

PATIENT
  Age: 56 Year
  Sex: Male
  Weight: 58 kg

DRUGS (4)
  1. LEUCOVORIN INJECTION [Suspect]
     Active Substance: LEUCOVORIN CALCIUM
     Route: 041
     Dates: start: 20210408, end: 20210408
  2. OXALIPLATIN INJECTION USP, 5 MG/ML, PACKAGED IN 50 MG/10 ML AND 100 MG [Suspect]
     Active Substance: OXALIPLATIN
     Indication: PANCREATIC CARCINOMA
     Route: 041
     Dates: start: 20210408, end: 20210408
  3. IRINOTECAN LIPIDOSOME [Suspect]
     Active Substance: IRINOTECAN
     Route: 041
     Dates: start: 20210408, end: 20210408
  4. 5?FLUOROURACIL INJECTION [Suspect]
     Active Substance: FLUOROURACIL
     Route: 042
     Dates: start: 20210408, end: 20210410

REACTIONS (1)
  - Bile duct stenosis [Recovered/Resolved]

NARRATIVE: CASE EVENT DATE: 20210508
